FAERS Safety Report 24138755 (Version 1)
Quarter: 2024Q3

REPORT INFORMATION
  Report Type: Spontaneous
  Country: GB (occurrence: GB)
  Receive Date: 20240725
  Receipt Date: 20240725
  Transmission Date: 20241017
  Serious: Yes (Other)
  Sender: ABBVIE
  Company Number: GB-MHRA-30693806

PATIENT
  Age: 65 Year
  Sex: Female

DRUGS (13)
  1. UPADACITINIB [Suspect]
     Active Substance: UPADACITINIB
     Indication: Crohn^s disease
     Route: 048
  2. CHOLECALCIFEROL [Concomitant]
     Active Substance: CHOLECALCIFEROL
     Indication: Product used for unknown indication
  3. SENNA [Concomitant]
     Active Substance: SENNA LEAF\SENNOSIDES\SENNOSIDES A AND B
     Indication: Product used for unknown indication
  4. STERCULIA SPP. [Concomitant]
     Indication: Product used for unknown indication
     Dosage: 62% GRANULES 7 G SACHETS GLUTEN FREE
  5. ROSUVASTATIN [Suspect]
     Active Substance: ROSUVASTATIN
     Indication: Blood cholesterol increased
     Route: 065
  6. ALLOPURINOL [Concomitant]
     Active Substance: ALLOPURINOL
     Indication: Product used for unknown indication
  7. SERTRALINE [Concomitant]
     Active Substance: SERTRALINE HYDROCHLORIDE
     Indication: Product used for unknown indication
  8. HYDROXOCOBALAMIN [Concomitant]
     Active Substance: HYDROXOCOBALAMIN
     Indication: Product used for unknown indication
     Dosage: 1MG/1ML SOLUTION FOR INJECTION AMPOULES
  9. RAMIPRIL [Concomitant]
     Active Substance: RAMIPRIL
     Indication: Product used for unknown indication
  10. INVITA D3 [Concomitant]
     Indication: Product used for unknown indication
     Dosage: 800 UNIT CAPSULES
  11. CALCIUM CARBONATE [Concomitant]
     Active Substance: CALCIUM CARBONATE
     Indication: Product used for unknown indication
  12. Emulsifying ointment BP [Concomitant]
     Indication: Product used for unknown indication
  13. Oilatum emollient [Concomitant]
     Indication: Product used for unknown indication

REACTIONS (1)
  - Transient ischaemic attack [Unknown]
